FAERS Safety Report 25320860 (Version 1)
Quarter: 2025Q2

REPORT INFORMATION
  Report Type: Spontaneous
  Country: US (occurrence: US)
  Receive Date: 20250515
  Receipt Date: 20250515
  Transmission Date: 20250717
  Serious: No
  Sender: SANOFI AVENTIS
  Company Number: US-SA-2025SA137618

PATIENT
  Age: 26 Year
  Sex: Female

DRUGS (4)
  1. DUPIXENT [Suspect]
     Active Substance: DUPILUMAB
     Indication: Nasal polyps
     Dosage: 300 MG, QOW
     Route: 058
     Dates: start: 20250418
  2. ZYRTEC [Concomitant]
     Active Substance: CETIRIZINE HYDROCHLORIDE
  3. SINGULAIR [Concomitant]
     Active Substance: MONTELUKAST SODIUM
  4. MOMETASONE FUROATE [Concomitant]
     Active Substance: MOMETASONE FUROATE

REACTIONS (5)
  - Skin irritation [Unknown]
  - Pyrexia [Unknown]
  - Fatigue [Unknown]
  - Headache [Unknown]
  - Rash [Unknown]

NARRATIVE: CASE EVENT DATE: 20250101
